FAERS Safety Report 10247419 (Version 1)
Quarter: 2014Q2

REPORT INFORMATION
  Report Type: Spontaneous
  Country: BR (occurrence: None)
  Receive Date: 20140617
  Receipt Date: 20140617
  Transmission Date: 20141212
  Serious: Yes (Other)
  Sender: FDA-Public Use
  Company Number: KAD201406-00618

PATIENT
  Age: 67 Year
  Sex: Female

DRUGS (6)
  1. RIBAVIRIN (RIBAVIRIN) [Suspect]
     Indication: CHRONIC HEPATITIS C
     Dosage: 1000 MG/DAY
  2. INCIVIO (TELAPREVIR) [Suspect]
     Indication: CHRONIC HEPATITIS C
     Dosage: 2250 MG/DAY
  3. PEGASYS (PEGINTERFERON ALFA-2A) [Suspect]
     Indication: CHRONIC HEPATITIS C
  4. ATENOLOL (ATENOLOL) (ATENOLOL) [Concomitant]
  5. CHLORTALIDONE (CHLORTALIDONE) (CHLORTALIDONE) [Concomitant]
  6. METFORMIN XR (METFORMIN XR) (METFORMIN XR) [Concomitant]

REACTIONS (2)
  - Renal failure acute [None]
  - Anaemia [None]
